FAERS Safety Report 7435702-6 (Version None)
Quarter: 2011Q2

REPORT INFORMATION
  Report Type: 
  Country: None (occurrence: None)
  Receive Date: 20110418
  Receipt Date: 20110401
  Transmission Date: 20111010
  Serious: Yes (Death)
  Sender: FDA-Public Use
  Company Number: AE 2011-146

PATIENT
  Age: 43 Year
  Sex: Male

DRUGS (1)
  1. CLOZAPINE [Suspect]

REACTIONS (7)
  - GASTROINTESTINAL NECROSIS [None]
  - ABDOMINAL PAIN [None]
  - FAECALOMA [None]
  - MULTI-ORGAN FAILURE [None]
  - OESOPHAGITIS ULCERATIVE [None]
  - FAECAL VOMITING [None]
  - SEPSIS [None]
